FAERS Safety Report 9525127 (Version 2)
Quarter: 2013Q3

REPORT INFORMATION
  Report Type: Spontaneous
  Country: MX (occurrence: MX)
  Receive Date: 20130916
  Receipt Date: 20130916
  Transmission Date: 20140515
  Serious: Yes (Hospitalization, Other)
  Sender: FDA-Public Use
  Company Number: MX-ELI_LILLY_AND_COMPANY-MX201308006530

PATIENT
  Age: 52 Year
  Sex: Female
  Weight: 160 kg

DRUGS (3)
  1. SYMBYAX [Suspect]
     Indication: DELIRIUM
     Dosage: 1 DF, QD
     Route: 065
  2. SYMBYAX [Suspect]
     Indication: DEPRESSION
  3. SYMBYAX [Suspect]
     Indication: HALLUCINATION

REACTIONS (2)
  - Blood calcium decreased [Recovered/Resolved]
  - Blood sodium decreased [Recovered/Resolved]
